FAERS Safety Report 20758250 (Version 1)
Quarter: 2022Q2

REPORT INFORMATION
  Report Type: Spontaneous
  Country: US (occurrence: None)
  Receive Date: 20220427
  Receipt Date: 20220427
  Transmission Date: 20220721
  Serious: Yes (Death)
  Sender: FDA-Public Use
  Company Number: None

PATIENT
  Age: 81 Year
  Sex: Male
  Weight: 26.9 kg

DRUGS (14)
  1. TACROLIMUS [Suspect]
     Active Substance: TACROLIMUS
     Indication: Bone marrow transplant
     Dosage: FREQUENCY : TWICE A DAY;?
     Route: 048
     Dates: start: 20220328, end: 20220424
  2. JAKAFI [Suspect]
     Active Substance: RUXOLITINIB
     Indication: Graft versus host disease
     Dosage: FREQUENCY : TWICE A DAY;?
     Route: 048
     Dates: start: 20220210, end: 20220424
  3. METOPROLOL SUCCINATE [Concomitant]
     Active Substance: METOPROLOL SUCCINATE
  4. OMEPRAZOLE [Concomitant]
     Active Substance: OMEPRAZOLE
  5. METFORMIN [Concomitant]
     Active Substance: METFORMIN HYDROCHLORIDE
  6. POSACONAZOLE [Concomitant]
     Active Substance: POSACONAZOLE
  7. PREDNISONE [Concomitant]
     Active Substance: PREDNISONE
  8. LOSARTAN [Concomitant]
     Active Substance: LOSARTAN
  9. ATOVAQUONE [Concomitant]
     Active Substance: ATOVAQUONE
  10. BUDESONIDE [Concomitant]
  11. AMLODIPINE [Concomitant]
     Active Substance: AMLODIPINE BESYLATE
  12. ACYCLOVIR [Concomitant]
     Active Substance: ACYCLOVIR
  13. LEVOFLOXACIN [Concomitant]
     Active Substance: LEVOFLOXACIN
  14. PREVYMIS [Concomitant]
     Active Substance: LETERMOVIR

REACTIONS (1)
  - Disease progression [None]

NARRATIVE: CASE EVENT DATE: 20220424
